FAERS Safety Report 4447167-7 (Version None)
Quarter: 2004Q3

REPORT INFORMATION
  Report Type: 
  Country: None (occurrence: None)
  Receive Date: 20040908
  Receipt Date: 20040908
  Transmission Date: 20050211
  Serious: Yes (Other)
  Sender: FDA-Public Use
  Company Number: None

PATIENT
  Age: 50 Year
  Sex: Female
  Weight: 74.8435 kg

DRUGS (1)
  1. BUPROPION HCL [Suspect]
     Indication: MIGRAINE
     Dosage: 150 MG SA BID PO
     Route: 048
     Dates: start: 20040602, end: 20040906

REACTIONS (2)
  - MIGRAINE [None]
  - PHARMACEUTICAL PRODUCT COMPLAINT [None]
